FAERS Safety Report 11870284 (Version 1)
Quarter: 2015Q4

REPORT INFORMATION
  Report Type: Spontaneous
  Country: US (occurrence: None)
  Receive Date: 20151224
  Receipt Date: 20151224
  Transmission Date: 20160305
  Serious: Yes (Other)
  Sender: FDA-Public Use
  Company Number: None

PATIENT
  Age: 73 Year
  Sex: Female

DRUGS (7)
  1. XANAX [Concomitant]
     Active Substance: ALPRAZOLAM
  2. CLONIDINE. [Concomitant]
     Active Substance: CLONIDINE
  3. ASA [Concomitant]
     Active Substance: ASPIRIN
  4. ELIQUIS [Suspect]
     Active Substance: APIXABAN
     Indication: ATRIAL FIBRILLATION
  5. LOTENSIN [Suspect]
     Active Substance: BENAZEPRIL HYDROCHLORIDE
  6. FLECAINIDE [Concomitant]
     Active Substance: FLECAINIDE
  7. VERAPAMIL [Concomitant]
     Active Substance: VERAPAMIL HYDROCHLORIDE

REACTIONS (2)
  - Chest pain [None]
  - Dyspnoea [None]
